FAERS Safety Report 8857103 (Version 1)
Quarter: 2012Q4

REPORT INFORMATION
  Report Type: 
  Country: US (occurrence: US)
  Receive Date: 20121023
  Receipt Date: 20121023
  Transmission Date: 20130627
  Serious: No
  Sender: FDA-Public Use
  Company Number: US-AMGEN-USASP2012054908

PATIENT
  Age: 77 Year
  Sex: Female
  Weight: 77.1 kg

DRUGS (4)
  1. ENBREL [Suspect]
     Indication: PRODUCT USED FOR UNKNOWN INDICATION
     Dosage: 50 mg, 2 times/wk
     Route: 058
  2. EFFEXOR [Concomitant]
     Dosage: 75 mg, UNK
  3. LEVOTHYROXIN [Concomitant]
     Dosage: 100 mug, UNK
  4. DILTIAZEM [Concomitant]
     Dosage: 180 mg, UNK

REACTIONS (1)
  - Bronchitis [Recovered/Resolved]
